FAERS Safety Report 5212680-1 (Version None)
Quarter: 2007Q1

REPORT INFORMATION
  Report Type: 
  Country: None (occurrence: None)
  Receive Date: 20061107
  Receipt Date: 20060911
  Transmission Date: 20070707
  Serious: No
  Sender: FDA-Public Use
  Company Number: 200610413BWH

PATIENT
  Age: 68 Year
  Sex: Male

DRUGS (2)
  1. LEVITRA [Suspect]
     Indication: ERECTILE DYSFUNCTION
     Dosage: SEE IMAGE
     Route: 048
     Dates: start: 20050101
  2. LEVITRA [Suspect]
     Indication: ERECTILE DYSFUNCTION
     Dosage: SEE IMAGE
     Route: 048
     Dates: start: 20060101

REACTIONS (7)
  - CHROMATOPSIA [None]
  - COLOUR BLINDNESS [None]
  - CYANOPSIA [None]
  - DRY EYE [None]
  - ERECTILE DYSFUNCTION [None]
  - LACRIMATION INCREASED [None]
  - VISUAL DISTURBANCE [None]
